FAERS Safety Report 4735769-X (Version None)
Quarter: 2005Q3

REPORT INFORMATION
  Report Type: 
  Country: None (occurrence: None)
  Receive Date: 20050803
  Receipt Date: 20050803
  Transmission Date: 20060218
  Serious: No
  Sender: FDA-Public Use
  Company Number: None

PATIENT
  Sex: Male
  Weight: 65.7716 kg

DRUGS (1)
  1. PENTASA [Suspect]
     Indication: CROHN'S DISEASE
     Dosage: 1GM QID ORAL
     Route: 048
     Dates: start: 20050603, end: 20050729

REACTIONS (2)
  - ARTHRALGIA [None]
  - PYREXIA [None]
